FAERS Safety Report 7339263-1 (Version None)
Quarter: 2011Q1

REPORT INFORMATION
  Report Type: 
  Country: None (occurrence: None)
  Receive Date: 20110308
  Receipt Date: 20110303
  Transmission Date: 20110831
  Serious: Yes (Other)
  Sender: FDA-Public Use
  Company Number: BR-PFIZER INC-2011046899

PATIENT
  Age: 64 Year
  Sex: Female
  Weight: 61 kg

DRUGS (5)
  1. ENALAPRIL MALEATE [Concomitant]
     Indication: HYPERTENSION
     Dosage: UNK
  2. INDOCIN [Concomitant]
     Dosage: UNK
     Dates: start: 20110221, end: 20110302
  3. LYRICA [Suspect]
     Indication: NECK PAIN
     Dosage: 150 MG, 1X/DAY
     Route: 048
     Dates: start: 20110302
  4. APRAZ [Concomitant]
     Indication: ANXIETY
     Dosage: UNK
  5. LIPITOR [Concomitant]
     Indication: BLOOD CHOLESTEROL INCREASED
     Dosage: 20 MG, UNK
     Dates: start: 20070101

REACTIONS (2)
  - HEART RATE INCREASED [None]
  - DIZZINESS POSTURAL [None]
